FAERS Safety Report 4835611-2 (Version None)
Quarter: 2005Q4

REPORT INFORMATION
  Report Type: 
  Country: None (occurrence: None)
  Receive Date: 20051121
  Receipt Date: 20051107
  Transmission Date: 20060501
  Serious: Yes (Other)
  Sender: FDA-Public Use
  Company Number: 2005155191

PATIENT
  Sex: Male

DRUGS (1)
  1. FLAGYL [Suspect]
     Indication: COLITIS ULCERATIVE
     Dates: end: 20010901

REACTIONS (2)
  - HAEMORRHAGE [None]
  - HYPOAESTHESIA [None]
